FAERS Safety Report 16359496 (Version 4)
Quarter: 2019Q3

REPORT INFORMATION
  Report Type: Spontaneous
  Country: US (occurrence: US)
  Receive Date: 20190528
  Receipt Date: 20190716
  Transmission Date: 20191004
  Serious: No
  Sender: FDA-Public Use
  Company Number: US-BIOGEN-2019BI00743103

PATIENT
  Age: 37 Year
  Sex: Female

DRUGS (6)
  1. TECFIDERA [Suspect]
     Active Substance: DIMETHYL FUMARATE
     Route: 048
     Dates: start: 201904
  2. TECFIDERA [Suspect]
     Active Substance: DIMETHYL FUMARATE
     Dosage: MAINTENANCE DOSE
     Route: 048
     Dates: start: 20190301
  3. TECFIDERA [Suspect]
     Active Substance: DIMETHYL FUMARATE
     Route: 065
     Dates: start: 2018, end: 201907
  4. TECFIDERA [Suspect]
     Active Substance: DIMETHYL FUMARATE
     Route: 065
     Dates: start: 20190610
  5. TECFIDERA [Suspect]
     Active Substance: DIMETHYL FUMARATE
     Indication: MULTIPLE SCLEROSIS
     Dosage: STARTING DOSE
     Route: 048
     Dates: start: 20190221, end: 20190301
  6. TECFIDERA [Suspect]
     Active Substance: DIMETHYL FUMARATE
     Route: 048
     Dates: end: 20190708

REACTIONS (23)
  - Asthenia [Not Recovered/Not Resolved]
  - Inflammation [Recovered/Resolved]
  - Contusion [Unknown]
  - Dyspepsia [Unknown]
  - Vitamin E decreased [Not Recovered/Not Resolved]
  - Kidney infection [Unknown]
  - Pruritus [Recovered/Resolved]
  - Rash erythematous [Recovered/Resolved]
  - Anxiety [Not Recovered/Not Resolved]
  - White blood cell count increased [Recovered/Resolved]
  - Vitamin D decreased [Not Recovered/Not Resolved]
  - Insomnia [Recovered/Resolved]
  - Multiple sclerosis [Unknown]
  - Hyperreflexia [Unknown]
  - Hypertension [Unknown]
  - Flatulence [Unknown]
  - Vision blurred [Not Recovered/Not Resolved]
  - Fatigue [Not Recovered/Not Resolved]
  - Balance disorder [Not Recovered/Not Resolved]
  - Intentional underdose [Unknown]
  - Muscular weakness [Unknown]
  - Scratch [Unknown]
  - Diarrhoea [Recovered/Resolved]

NARRATIVE: CASE EVENT DATE: 201903
